FAERS Safety Report 13344684 (Version 1)
Quarter: 2017Q1

REPORT INFORMATION
  Report Type: Spontaneous
  Country: IT (occurrence: IT)
  Receive Date: 20170317
  Receipt Date: 20170317
  Transmission Date: 20170428
  Serious: Yes (Hospitalization)
  Sender: FDA-Public Use
  Company Number: IT-ACCORD-049086

PATIENT
  Age: 68 Year
  Sex: Male

DRUGS (9)
  1. LUCEN [Concomitant]
     Active Substance: ESOMEPRAZOLE
  2. CARDICOR [Concomitant]
     Active Substance: BISOPROLOL
  3. HUMALOG [Concomitant]
     Active Substance: INSULIN LISPRO
  4. LANSOX [Concomitant]
     Active Substance: LANSOPRAZOLE
  5. METHOTREXATE. [Suspect]
     Active Substance: METHOTREXATE
     Indication: RHEUMATOID ARTHRITIS
     Route: 058
  6. TORVAST [Concomitant]
     Active Substance: ATORVASTATIN
  7. TRIATEC [Concomitant]
     Active Substance: RAMIPRIL
  8. FOLINA [Concomitant]
     Active Substance: FOLIC ACID
  9. LUVION [Concomitant]
     Active Substance: CANRENONE

REACTIONS (1)
  - Interstitial lung disease [Recovering/Resolving]

NARRATIVE: CASE EVENT DATE: 20161226
